FAERS Safety Report 13414469 (Version 2)
Quarter: 2017Q2

REPORT INFORMATION
  Report Type: Report from Study
  Country: US (occurrence: US)
  Receive Date: 20170406
  Receipt Date: 20170509
  Transmission Date: 20170830
  Serious: Yes (Other)
  Sender: FDA-Public Use
  Company Number: US-ROCHE-1914356

PATIENT
  Age: 67 Year
  Sex: Female
  Weight: 122.58 kg

DRUGS (23)
  1. ACTEMRA [Suspect]
     Active Substance: TOCILIZUMAB
     Dosage: ONGOING;YES
     Route: 058
     Dates: start: 20170315
  2. LOSARTAN POTASSIUM. [Concomitant]
     Active Substance: LOSARTAN POTASSIUM
     Route: 048
  3. ACTEMRA [Suspect]
     Active Substance: TOCILIZUMAB
     Indication: RHEUMATOID ARTHRITIS
     Dosage: ONGOING;NO
     Route: 058
     Dates: start: 201501, end: 201608
  4. ACTEMRA [Suspect]
     Active Substance: TOCILIZUMAB
     Dosage: ONGOING;NO
     Route: 058
     Dates: start: 2016, end: 20170219
  5. OMEGA-3 FISH OIL FAT EMULSION INJECTION [Concomitant]
     Dosage: AS NEEDED
     Route: 065
  6. CYANOCOBALAMIN. [Concomitant]
     Active Substance: CYANOCOBALAMIN
     Dosage: 100MCG/ML; ONCE A MONTH
     Route: 030
  7. FOLIC ACID. [Concomitant]
     Active Substance: FOLIC ACID
     Route: 048
  8. ACTEMRA [Suspect]
     Active Substance: TOCILIZUMAB
     Dosage: ONGOING;NO
     Route: 058
     Dates: start: 201610
  9. OXYGEN. [Concomitant]
     Active Substance: OXYGEN
     Dosage: APPLY TURBES;USE ALL NIGHT
     Route: 065
  10. ROPINIROLE HYDROCHLORIDE. [Concomitant]
     Active Substance: ROPINIROLE HYDROCHLORIDE
     Dosage: AS NEEDED FOR ANXIETY
     Route: 048
  11. FLUOXETINE HCL [Concomitant]
     Active Substance: FLUOXETINE HYDROCHLORIDE
     Dosage: EVERY MORNING
     Route: 048
  12. LORAZEPAM. [Concomitant]
     Active Substance: LORAZEPAM
     Dosage: EVERY NIGHT AT BEDTIME
     Route: 048
  13. METHOTREXATE. [Concomitant]
     Active Substance: METHOTREXATE
     Route: 048
  14. PANTOPRAZOLE SODIUM. [Concomitant]
     Active Substance: PANTOPRAZOLE SODIUM
     Route: 048
  15. KETOCONAZOLE. [Concomitant]
     Active Substance: KETOCONAZOLE
     Dosage: EXTERNAL CREAM
     Route: 065
  16. FLINTSTONES VITAMINS [Concomitant]
  17. NYSTATIN. [Concomitant]
     Active Substance: NYSTATIN
     Dosage: 10000UNIT/GM;2-3 TIMES ON AFFECTED AREA
     Route: 065
  18. OPANA [Concomitant]
     Active Substance: OXYMORPHONE HYDROCHLORIDE
     Route: 048
  19. SIMVASTATIN. [Concomitant]
     Active Substance: SIMVASTATIN
     Dosage: AT BEDTIME
     Route: 048
  20. LEVOTHYROXINE SODIUM. [Concomitant]
     Active Substance: LEVOTHYROXINE SODIUM
     Route: 048
  21. PROBIOTIC (ENZYMES, INC) [Concomitant]
     Dosage: AS NEEDED
     Route: 065
  22. DIPHENOXYLATE/ATROPINE [Concomitant]
     Active Substance: ATROPINE\DIPHENOXYLATE
     Dosage: 2.5-0.025 MG ??TAKE 1-2 TAB AFTER EACH STOOL
     Route: 048
  23. ACETAMINOPHEN W/OXYCODONE [Concomitant]
     Active Substance: ACETAMINOPHEN\OXYCODONE HYDROCHLORIDE
     Dosage: 10-325 MG??6-8 HOURS AS NEEDED
     Route: 065

REACTIONS (8)
  - Skin cancer [Recovered/Resolved]
  - Medical device site induration [Not Recovered/Not Resolved]
  - Musculoskeletal stiffness [Unknown]
  - Peripheral swelling [Recovering/Resolving]
  - Joint swelling [Recovering/Resolving]
  - Laceration [Recovered/Resolved]
  - Complication associated with device [Not Recovered/Not Resolved]
  - Gait disturbance [Not Recovered/Not Resolved]

NARRATIVE: CASE EVENT DATE: 2015
